FAERS Safety Report 15729497 (Version 1)
Quarter: 2018Q4

REPORT INFORMATION
  Report Type: Spontaneous
  Country: US (occurrence: US)
  Receive Date: 20181217
  Receipt Date: 20181217
  Transmission Date: 20190205
  Serious: No
  Sender: FDA-Public Use
  Company Number: US-TARO-2017TAR00941

PATIENT
  Age: 78 Year
  Sex: Male
  Weight: 83.9 kg

DRUGS (10)
  1. GEMFIBROZIL. [Concomitant]
     Active Substance: GEMFIBROZIL
     Dosage: 600 MG, 2X/DAY
  2. UROXATRAL [Concomitant]
     Active Substance: ALFUZOSIN HYDROCHLORIDE
     Dosage: UNK UNK, 1X/DAY
  3. MULTIVITAMIN [Concomitant]
     Active Substance: VITAMINS
     Dosage: UNK
  4. 1% CORTISONE CREAM (SHEFFIELD PHARMACEUTICAL) [Suspect]
     Active Substance: HYDROCORTISONE
     Indication: APPLICATION SITE PRURITUS
     Dosage: ^FINGER TIP^ AMOUNT, 2X/DAY
     Route: 061
     Dates: start: 20171010, end: 20171021
  5. FLUOROURACIL TOPICAL SOLUTION USP 2% [Suspect]
     Active Substance: FLUOROURACIL
     Indication: PRECANCEROUS SKIN LESION
     Dosage: ^FINGER TIP^ AMOUNT, 2X/DAY
     Route: 061
     Dates: start: 20171004, end: 20171014
  6. OMEPRAZOLE. [Concomitant]
     Active Substance: OMEPRAZOLE
     Dosage: 200 MG, 1X/DAY
  7. VITAMIN D3 [Concomitant]
     Active Substance: CHOLECALCIFEROL
     Dosage: 2000 U, 1X/DAY
  8. COQ 10 [Concomitant]
     Active Substance: UBIDECARENONE
     Dosage: 100 MG, UNK
  9. 1% CORTISONE CREAM (SHEFFIELD PHARMACEUTICAL) [Suspect]
     Active Substance: HYDROCORTISONE
     Indication: APPLICATION SITE PAIN
  10. NORVASC [Concomitant]
     Active Substance: AMLODIPINE BESYLATE
     Dosage: 10 MG, 1X/DAY

REACTIONS (6)
  - Application site pain [Recovered/Resolved]
  - Insomnia [Recovered/Resolved]
  - Skin discolouration [Recovered/Resolved]
  - Off label use [Recovered/Resolved]
  - Hypersensitivity [Recovered/Resolved]
  - Malaise [Recovering/Resolving]

NARRATIVE: CASE EVENT DATE: 201710
